FAERS Safety Report 8328962-0 (Version None)
Quarter: 2012Q2

REPORT INFORMATION
  Report Type: 
  Country: None (occurrence: None)
  Receive Date: 20120502
  Receipt Date: 20120417
  Transmission Date: 20120825
  Serious: Yes (Hospitalization)
  Sender: FDA-Public Use
  Company Number: GB-NOVOPROD-349758

PATIENT
  Sex: Female

DRUGS (1)
  1. VICTOZA [Suspect]
     Indication: TYPE 2 DIABETES MELLITUS
     Dosage: 0.6 MG, QD
     Route: 065
     Dates: start: 20120323

REACTIONS (6)
  - VOMITING [None]
  - BLOOD POTASSIUM DECREASED [None]
  - DIARRHOEA [None]
  - TREMOR [None]
  - MOTOR DYSFUNCTION [None]
  - HYPERGLYCAEMIA [None]
